FAERS Safety Report 5685479-X (Version None)
Quarter: 2008Q1

REPORT INFORMATION
  Report Type: 
  Country: None (occurrence: None)
  Receive Date: 20080328
  Receipt Date: 20061108
  Transmission Date: 20080703
  Serious: No
  Sender: FDA-Public Use
  Company Number: US-BAYER-US-SHR-03-003398

PATIENT
  Age: 30 Year
  Sex: Female

DRUGS (4)
  1. MIRENA [Suspect]
     Indication: CONTRACEPTION
     Route: 015
     Dates: start: 20010401
  2. WELLBUTRIN [Concomitant]
     Indication: DEPRESSION
     Dosage: UNIT DOSE: 200 MG
     Route: 048
     Dates: start: 20021201
  3. WELLBUTRIN [Concomitant]
     Route: 048
     Dates: start: 20021201
  4. REMERON [Concomitant]
     Indication: DEPRESSION
     Route: 048
     Dates: start: 20030101

REACTIONS (1)
  - PREGNANCY WITH CONTRACEPTIVE DEVICE [None]
